FAERS Safety Report 6016752-3 (Version None)
Quarter: 2008Q4

REPORT INFORMATION
  Report Type: 
  Country: None (occurrence: None)
  Receive Date: 20081222
  Receipt Date: 20081215
  Transmission Date: 20090506
  Serious: Yes (Other)
  Sender: FDA-Public Use
  Company Number: DE-ROXANE LABORATORIES, INC.-2008-RO-00434RO

PATIENT

DRUGS (19)
  1. CYCLOPHOSPHAMIDE [Suspect]
     Indication: BURKITT'S LYMPHOMA
  2. PREDNISONE TAB [Suspect]
     Indication: BURKITT'S LYMPHOMA
  3. DEXAMETHASONE [Suspect]
     Indication: BURKITT'S LYMPHOMA
  4. METHOTREXATE [Suspect]
     Indication: BURKITT'S LYMPHOMA
  5. RITUXIMAB [Suspect]
     Indication: BURKITT'S LYMPHOMA
  6. VINCRISTINE [Suspect]
     Indication: BURKITT'S LYMPHOMA
  7. IFOSFAMIDE [Suspect]
     Indication: BURKITT'S LYMPHOMA
  8. CYTARABINE [Suspect]
     Indication: BURKITT'S LYMPHOMA
  9. ETOPOSIDE [Suspect]
     Indication: BURKITT'S LYMPHOMA
  10. ADRIAMYCIN PFS [Suspect]
     Indication: BURKITT'S LYMPHOMA
  11. VINDESINE [Suspect]
     Indication: BURKITT'S LYMPHOMA
  12. RECONBINANT GRANULOCYTE COLONY SITMULATING FACTOR [Concomitant]
     Indication: NEUTROPENIA
  13. PALIFERMIN [Concomitant]
     Indication: STOMATITIS
  14. ANTIBIOTIC [Concomitant]
     Indication: INFECTION
  15. MORPHINE [Concomitant]
     Indication: ANALGESIC THERAPY
     Route: 042
  16. AMPHOTERICIN B [Concomitant]
     Indication: ANTIFUNGAL PROPHYLAXIS
  17. TETRACAINE POLYGYL STERILE OPHTHALMIC SOLUTION [Concomitant]
     Indication: STOMATITIS
  18. PANTHENOLE [Concomitant]
     Indication: STOMATITIS
  19. CAMOMILE-CONTAINING MOUTHWASHES [Concomitant]
     Indication: STOMATITIS

REACTIONS (2)
  - INFECTION [None]
  - STOMATITIS [None]
